FAERS Safety Report 24016947 (Version 1)
Quarter: 2024Q2

REPORT INFORMATION
  Report Type: Spontaneous
  Country: JP (occurrence: JP)
  Receive Date: 20240626
  Receipt Date: 20240626
  Transmission Date: 20240716
  Serious: Yes (Other)
  Sender: FDA-Public Use
  Company Number: JP-TAKEDA-2024TJP000453

PATIENT
  Age: 14 Year
  Sex: Male

DRUGS (5)
  1. INTUNIV [Suspect]
     Active Substance: GUANFACINE HYDROCHLORIDE
     Indication: Neurodevelopmental disorder
     Dosage: 1 MILLIGRAM
     Route: 048
  2. INTUNIV [Suspect]
     Active Substance: GUANFACINE HYDROCHLORIDE
     Dosage: 0.5 MILLIGRAM, QD
     Route: 048
  3. ROZEREM [Suspect]
     Active Substance: RAMELTEON
     Indication: Product used for unknown indication
     Dosage: UNK
     Route: 065
  4. SEROQUEL [Concomitant]
     Active Substance: QUETIAPINE FUMARATE
     Dosage: UNK
     Route: 065
  5. DEPAKENE [Concomitant]
     Active Substance: VALPROIC ACID
     Dosage: UNK
     Route: 065

REACTIONS (6)
  - Self-destructive behaviour [Recovered/Resolved]
  - Wrong technique in product usage process [Recovered/Resolved]
  - Product prescribing error [Recovered/Resolved]
  - Off label use [Recovered/Resolved]
  - Product administered to patient of inappropriate age [Unknown]
  - Off label use [Unknown]
